FAERS Safety Report 24563227 (Version 2)
Quarter: 2025Q1

REPORT INFORMATION
  Report Type: Spontaneous
  Country: CA (occurrence: CA)
  Receive Date: 20241030
  Receipt Date: 20250303
  Transmission Date: 20250408
  Serious: Yes (Hospitalization)
  Sender: ROCHE
  Company Number: CA-002147023-NVSC2024CA205737

PATIENT
  Age: 33 Year
  Sex: Female

DRUGS (43)
  1. OMALIZUMAB [Suspect]
     Active Substance: OMALIZUMAB
     Indication: Chronic spontaneous urticaria
     Dosage: 300 MG, Q4W
     Route: 050
  2. OMALIZUMAB [Suspect]
     Active Substance: OMALIZUMAB
     Dosage: 450 MG, Q4W
     Route: 050
  3. OMALIZUMAB [Suspect]
     Active Substance: OMALIZUMAB
     Dosage: 450 MG, Q4W
     Route: 050
  4. OMALIZUMAB [Suspect]
     Active Substance: OMALIZUMAB
     Route: 050
  5. OMALIZUMAB [Suspect]
     Active Substance: OMALIZUMAB
     Dosage: 450 MG, Q4W
     Route: 050
  6. OMALIZUMAB [Suspect]
     Active Substance: OMALIZUMAB
     Dosage: 300 MG, Q4W
     Route: 050
  7. OMALIZUMAB [Suspect]
     Active Substance: OMALIZUMAB
     Route: 050
  8. OMALIZUMAB [Suspect]
     Active Substance: OMALIZUMAB
     Route: 050
  9. OMALIZUMAB [Suspect]
     Active Substance: OMALIZUMAB
     Route: 050
  10. OMALIZUMAB [Suspect]
     Active Substance: OMALIZUMAB
     Route: 050
  11. OMALIZUMAB [Suspect]
     Active Substance: OMALIZUMAB
     Dosage: 300 MG, Q4W
     Route: 050
  12. OMALIZUMAB [Suspect]
     Active Substance: OMALIZUMAB
     Route: 050
  13. OMALIZUMAB [Suspect]
     Active Substance: OMALIZUMAB
     Route: 050
  14. OMALIZUMAB [Suspect]
     Active Substance: OMALIZUMAB
     Route: 050
  15. DOXEPIN [Concomitant]
     Active Substance: DOXEPIN
     Indication: Chronic spontaneous urticaria
     Dosage: 1 DOSAGE FORM, QD
     Route: 065
  16. BENADRYL [Concomitant]
     Active Substance: DIPHENHYDRAMINE HYDROCHLORIDE
     Indication: Chronic spontaneous urticaria
     Route: 065
  17. BILASTINE [Concomitant]
     Active Substance: BILASTINE
     Indication: Product used for unknown indication
     Route: 065
  18. BILASTINE [Concomitant]
     Active Substance: BILASTINE
     Route: 065
  19. BILASTINE [Concomitant]
     Active Substance: BILASTINE
     Route: 065
  20. CETIRIZINE [Concomitant]
     Active Substance: CETIRIZINE HYDROCHLORIDE
     Indication: Chronic spontaneous urticaria
     Dosage: 2 DOSAGE FORM, QD
     Route: 065
  21. EPIPEN [Concomitant]
     Active Substance: EPINEPHRINE
     Indication: Chronic spontaneous urticaria
     Route: 065
  22. FAMOTIDINE [Concomitant]
     Active Substance: FAMOTIDINE
     Indication: Product used for unknown indication
     Dosage: 40 MG, QD
     Route: 065
  23. FAMOTIDINE [Concomitant]
     Active Substance: FAMOTIDINE
     Dosage: 1 DOSAGE FORM, QD
     Route: 065
  24. FAMOTIDINE [Concomitant]
     Active Substance: FAMOTIDINE
     Dosage: 40 MG, QD
     Route: 065
  25. FAMOTIDINE [Concomitant]
     Active Substance: FAMOTIDINE
     Dosage: 40 MG, QD
     Route: 065
  26. FAMOTIDINE [Concomitant]
     Active Substance: FAMOTIDINE
     Dosage: 2 DOSAGE FORM, QD
     Route: 065
  27. FAMOTIDINE [Concomitant]
     Active Substance: FAMOTIDINE
     Dosage: 1 DOSAGE FORM, QD
     Route: 065
  28. HYDROXYZINE [Concomitant]
     Active Substance: HYDROXYZINE HYDROCHLORIDE
     Indication: Product used for unknown indication
     Dosage: 25 MG, QD
     Route: 065
  29. HYDROXYZINE [Concomitant]
     Active Substance: HYDROXYZINE HYDROCHLORIDE
     Dosage: 25 MG, QD
     Route: 065
  30. HYDROXYZINE [Concomitant]
     Active Substance: HYDROXYZINE HYDROCHLORIDE
     Dosage: 25 MG, QD
     Route: 065
  31. KETOTIFEN [Concomitant]
     Active Substance: KETOTIFEN
     Indication: Product used for unknown indication
     Dosage: 2 MG, QD
     Route: 065
  32. KETOTIFEN [Concomitant]
     Active Substance: KETOTIFEN
     Dosage: 2 MG, QD
     Route: 065
  33. KETOTIFEN [Concomitant]
     Active Substance: KETOTIFEN
     Dosage: 2 MG, QD
     Route: 065
  34. RUPATADINE FUMARATE [Concomitant]
     Active Substance: RUPATADINE FUMARATE
     Indication: Chronic spontaneous urticaria
     Dosage: 2 DOSAGE FORM, QD
     Route: 065
  35. RUPATADINE FUMARATE [Concomitant]
     Active Substance: RUPATADINE FUMARATE
     Dosage: 2 DOSAGE FORM, QD
     Route: 065
  36. TOPICORT [Concomitant]
     Active Substance: DESOXIMETASONE
     Indication: Chronic spontaneous urticaria
     Route: 065
  37. CYCLOSPORINE [Concomitant]
     Active Substance: CYCLOSPORINE
     Indication: Chronic spontaneous urticaria
     Dosage: 300 MG, QD
     Route: 065
  38. CYCLOSPORINE [Concomitant]
     Active Substance: CYCLOSPORINE
     Dosage: 2 DOSAGE FORM, QD
     Route: 050
  39. DESOGESTREL [Concomitant]
     Active Substance: DESOGESTREL
     Indication: Chronic spontaneous urticaria
     Dosage: 1 DOSAGE FORM, QD
     Route: 050
  40. DOXEPIN [Concomitant]
     Active Substance: DOXEPIN
     Indication: Chronic spontaneous urticaria
     Route: 050
  41. MOMETASONE [Concomitant]
     Active Substance: MOMETASONE
     Indication: Chronic spontaneous urticaria
     Route: 061
  42. MONTELUKAST [Concomitant]
     Active Substance: MONTELUKAST
     Indication: Chronic spontaneous urticaria
  43. MONTELUKAST [Concomitant]
     Active Substance: MONTELUKAST

REACTIONS (19)
  - Angioedema [Not Recovered/Not Resolved]
  - Anxiety [Not Recovered/Not Resolved]
  - Chronic spontaneous urticaria [Not Recovered/Not Resolved]
  - Condition aggravated [Not Recovered/Not Resolved]
  - Headache [Not Recovered/Not Resolved]
  - Inappropriate schedule of product administration [Unknown]
  - Incorrect dose administered [Unknown]
  - Insomnia [Not Recovered/Not Resolved]
  - Nausea [Not Recovered/Not Resolved]
  - Sedation [Not Recovered/Not Resolved]
  - Skin burning sensation [Not Recovered/Not Resolved]
  - Sleep disorder [Not Recovered/Not Resolved]
  - Somnolence [Not Recovered/Not Resolved]
  - Stress [Not Recovered/Not Resolved]
  - Weight decreased [Not Recovered/Not Resolved]
  - Wheezing [Not Recovered/Not Resolved]
  - Anaemia [Not Recovered/Not Resolved]
  - Off label use [Unknown]
  - Sleep deficit [Not Recovered/Not Resolved]
